FAERS Safety Report 8719951 (Version 3)
Quarter: 2013Q2

REPORT INFORMATION
  Report Type: Spontaneous
  Country: US (occurrence: US)
  Receive Date: 20120813
  Receipt Date: 20130422
  Transmission Date: 20140414
  Serious: Yes (Hospitalization, Disabling)
  Sender: FDA-Public Use
  Company Number: US-BAYER-2012-079291

PATIENT
  Age: 22 Year
  Sex: Female
  Weight: 61.68 kg

DRUGS (15)
  1. YAZ [Suspect]
     Indication: CONTRACEPTION
     Dosage: UNK
     Dates: start: 201005, end: 201006
  2. YAZ [Suspect]
     Indication: ACNE
  3. GIANVI [Suspect]
     Indication: ACNE
     Dosage: UNK
     Dates: start: 201006, end: 201010
  4. GIANVI [Suspect]
     Indication: CONTRACEPTION
  5. REQUIP [Concomitant]
     Dosage: UNK
  6. EPIPEN [Concomitant]
     Dosage: UNK UNK, PRN
  7. AZITHROMYCIN [Concomitant]
     Dosage: 250 MG, TAB UNK
     Dates: start: 20100930
  8. CHLORPHEN.MA.W/PHENYLEPH.HCL/DEX.METHORP.HBR [Concomitant]
     Dosage: UNK
     Dates: start: 20100930
  9. VANCOMYCIN [Concomitant]
     Indication: BACTERAEMIA
  10. VANCOMYCIN [Concomitant]
     Indication: STAPHYLOCOCCAL SEPSIS
  11. ZOSYN [Concomitant]
  12. ALBUTEROL [Concomitant]
  13. ATROVENT [Concomitant]
  14. NARCAN [Concomitant]
  15. LEXAPRO [Concomitant]

REACTIONS (10)
  - Cerebrovascular accident [None]
  - Cerebellar infarction [None]
  - Brain compression [None]
  - Myocardial infarction [None]
  - General physical health deterioration [None]
  - Injury [None]
  - Pain [None]
  - Emotional distress [None]
  - Anxiety [None]
  - Pain [None]
